FAERS Safety Report 8052327-2 (Version None)
Quarter: 2011Q4

REPORT INFORMATION
  Report Type: 
  Country: None (occurrence: None)
  Receive Date: 20111223
  Receipt Date: 20111212
  Transmission Date: 20120403
  Serious: Yes (Death, Other)
  Sender: FDA-Public Use
  Company Number: 2011PROUSA00843

PATIENT
  Age: 84 Year
  Sex: Male

DRUGS (1)
  1. PROVENGE [Suspect]
     Indication: PROSTATE CANCER METASTATIC
     Dosage: 250 ML, SINGLE, INTRAVENOUS
     Route: 042
     Dates: start: 20111121, end: 20111121

REACTIONS (17)
  - CARDIAC ARREST [None]
  - PALLOR [None]
  - ANAEMIA [None]
  - ABDOMINAL PAIN LOWER [None]
  - PULSE ABSENT [None]
  - OEDEMA [None]
  - REFUSAL OF TREATMENT BY RELATIVE [None]
  - DYSPNOEA [None]
  - NEOPLASM PROGRESSION [None]
  - INFECTION [None]
  - NODAL RHYTHM [None]
  - RHYTHM IDIOVENTRICULAR [None]
  - ABDOMINAL DISTENSION [None]
  - MALAISE [None]
  - PUPILLARY REFLEX IMPAIRED [None]
  - PULSELESS ELECTRICAL ACTIVITY [None]
  - APNOEA [None]
